FAERS Safety Report 4356738-8 (Version None)
Quarter: 2004Q2

REPORT INFORMATION
  Report Type: 
  Country: None (occurrence: None)
  Receive Date: 20040507
  Receipt Date: 20040328
  Transmission Date: 20050107
  Serious: Yes (Hospitalization, Other)
  Sender: FDA-Public Use
  Company Number: KII-2004-0010022

PATIENT
  Age: 18 Month
  Sex: Female
  Weight: 12 kg

DRUGS (1)
  1. MORPHINE SULFATE [Suspect]
     Indication: DRUG USE FOR UNKNOWN INDICATION
     Dosage: UNK, UNK, UNK
     Route: 065

REACTIONS (5)
  - ACCIDENTAL EXPOSURE [None]
  - LETHARGY [None]
  - MIOSIS [None]
  - RESPIRATORY RATE DECREASED [None]
  - SEDATION [None]
